FAERS Safety Report 24275233 (Version 1)
Quarter: 2024Q3

REPORT INFORMATION
  Report Type: Spontaneous
  Country: US (occurrence: US)
  Receive Date: 20240903
  Receipt Date: 20240903
  Transmission Date: 20241016
  Serious: Yes (Other)
  Sender: RK PHARMA
  Company Number: US-RK PHARMA, INC-20240800050

PATIENT

DRUGS (2)
  1. NICARDIPINE HYDROCHLORIDE [Suspect]
     Active Substance: NICARDIPINE HYDROCHLORIDE
     Indication: Hypertension
     Dosage: 12.5 MG/H
     Route: 042
  2. NICARDIPINE HYDROCHLORIDE [Suspect]
     Active Substance: NICARDIPINE HYDROCHLORIDE
     Dosage: 2.5 MG/H
     Route: 042

REACTIONS (1)
  - Anaphylactoid reaction [Recovered/Resolved]
